FAERS Safety Report 12351594 (Version 1)
Quarter: 2016Q2

REPORT INFORMATION
  Report Type: Spontaneous
  Country: US (occurrence: US)
  Receive Date: 20160510
  Receipt Date: 20160510
  Transmission Date: 20160815
  Serious: No
  Sender: FDA-Public Use
  Company Number: US-MYLANLABS-2016M1006175

PATIENT
  Sex: Female

DRUGS (2)
  1. CABERGOLINE AMEL [Concomitant]
     Indication: BRAIN NEOPLASM
     Dosage: UNK
  2. XULANE [Suspect]
     Active Substance: ETHINYL ESTRADIOL\NORELGESTROMIN
     Indication: CONTRACEPTION
     Dosage: 150/35 ?G / QD, QWK FOR 3WKS, THEN OFF FOR 1WK
     Route: 062
     Dates: start: 20160124, end: 20160202

REACTIONS (2)
  - Inappropriate schedule of drug administration [Not Recovered/Not Resolved]
  - Metrorrhagia [Not Recovered/Not Resolved]

NARRATIVE: CASE EVENT DATE: 20160114
